FAERS Safety Report 8518606-7 (Version None)
Quarter: 2012Q3

REPORT INFORMATION
  Report Type: 
  Country: None (occurrence: None)
  Receive Date: 20120718
  Receipt Date: 20110919
  Transmission Date: 20120928
  Serious: No
  Sender: FDA-Public Use
  Company Number: US-BRISTOL-MYERS SQUIBB COMPANY-15680614

PATIENT
  Age: 64 Year
  Sex: Male

DRUGS (6)
  1. MULTIVITAMIN [Concomitant]
  2. COUMADIN [Suspect]
     Indication: AORTIC VALVE REPLACEMENT
     Dosage: 1DF= 1 TABLET 4 DAYS A WEEK AND 1.5 TABLETS 3 DAYS A WEEK. TAKING 1.5 TO 2 TABLETS A DAY.
  3. DOXAZOSIN MESYLATE [Concomitant]
  4. SERTRALINE HYDROCHLORIDE [Concomitant]
  5. PRAVASTATIN SODIUM [Concomitant]
  6. VITAMIN D [Concomitant]

REACTIONS (1)
  - INTERNATIONAL NORMALISED RATIO FLUCTUATION [None]
